FAERS Safety Report 16018128 (Version 1)
Quarter: 2019Q1

REPORT INFORMATION
  Report Type: Spontaneous
  Country: US (occurrence: US)
  Receive Date: 20190228
  Receipt Date: 20190228
  Transmission Date: 20190418
  Serious: Yes (Other)
  Sender: FDA-Public Use
  Company Number: None

PATIENT
  Age: 47 Year
  Sex: Female
  Weight: 67.5 kg

DRUGS (1)
  1. BOTOX [Suspect]
     Active Substance: ONABOTULINUMTOXINA
     Indication: SKIN WRINKLING
     Dosage: ?          QUANTITY:25 UNITS;OTHER FREQUENCY:8 INJECTIONS;?
     Route: 058
     Dates: start: 20190222, end: 20190222

REACTIONS (3)
  - Lymphadenopathy [None]
  - Oropharyngeal pain [None]
  - Dysphagia [None]

NARRATIVE: CASE EVENT DATE: 20190222
